FAERS Safety Report 21849678 (Version 1)
Quarter: 2023Q1

REPORT INFORMATION
  Report Type: Spontaneous
  Country: US (occurrence: None)
  Receive Date: 20230111
  Receipt Date: 20230111
  Transmission Date: 20230418
  Serious: Yes (Hospitalization)
  Sender: FDA-Public Use
  Company Number: None

PATIENT
  Age: 83 Year
  Sex: Female
  Weight: 79.92 kg

DRUGS (1)
  1. JAKAFI [Suspect]
     Active Substance: RUXOLITINIB
     Indication: Myelofibrosis
     Dosage: FREQUENCY : TWICE A DAY;?
     Route: 048
     Dates: start: 20220906

REACTIONS (9)
  - Oedema peripheral [None]
  - Oedema peripheral [None]
  - Back pain [None]
  - Blood pressure systolic increased [None]
  - Bone pain [None]
  - Visual impairment [None]
  - Acute macular neuroretinopathy [None]
  - Cerebrovascular accident [None]
  - Pyrexia [None]

NARRATIVE: CASE EVENT DATE: 20221221
